FAERS Safety Report 5869403-2 (Version None)
Quarter: 2008Q3

REPORT INFORMATION
  Report Type: 
  Country: None (occurrence: None)
  Receive Date: 20080828
  Receipt Date: 20080815
  Transmission Date: 20090109
  Serious: Yes (Death, Hospitalization)
  Sender: FDA-Public Use
  Company Number: 2008002026

PATIENT
  Age: 80 Year
  Sex: Male

DRUGS (1)
  1. ERLOTINIB / PLACEBO (ERLOTINIB HC1) (TABLET) (ERLOTINIB HC1) [Suspect]
     Indication: NON-SMALL CELL LUNG CANCER
     Dosage: 150 MG, QD, ORAL
     Route: 048
     Dates: start: 20080519

REACTIONS (2)
  - FALL [None]
  - HIP FRACTURE [None]
